FAERS Safety Report 11694619 (Version 1)
Quarter: 2015Q4

REPORT INFORMATION
  Report Type: Spontaneous
  Country: GB (occurrence: GB)
  Receive Date: 20151103
  Receipt Date: 20151103
  Transmission Date: 20160304
  Serious: Yes (Life-Threatening, Disabling, Other)
  Sender: FDA-Public Use
  Company Number: GB-SHIRE-GB201513228

PATIENT
  Age: 52 Year
  Sex: Female
  Weight: 68.94 kg

DRUGS (1)
  1. MEZAVANT XL [Suspect]
     Active Substance: MESALAMINE
     Indication: COLITIS ULCERATIVE
     Dosage: 1200 MG, 4X/DAY:QID
     Route: 048
     Dates: start: 20120919, end: 20120930

REACTIONS (7)
  - Tinnitus [Not Recovered/Not Resolved]
  - Musculoskeletal discomfort [Recovered/Resolved]
  - Headache [Recovered/Resolved]
  - Hearing impaired [Not Recovered/Not Resolved]
  - Head discomfort [Recovered/Resolved]
  - Inappropriate schedule of drug administration [Recovered/Resolved]
  - Suicidal ideation [Unknown]

NARRATIVE: CASE EVENT DATE: 20120919
